FAERS Safety Report 22321992 (Version 1)
Quarter: 2023Q2

REPORT INFORMATION
  Report Type: Other
  Country: US (occurrence: None)
  Receive Date: 20230516
  Receipt Date: 20230516
  Transmission Date: 20230721
  Serious: Yes (Disabling)
  Sender: FDA-Public Use
  Company Number: US-ROCHE-3348019

PATIENT
  Sex: Male
  Weight: 32.9 kg

DRUGS (1)
  1. EVRYSDI [Suspect]
     Active Substance: RISDIPLAM
     Indication: Spinal muscular atrophy
     Dosage: 0.75 MG/ML 80 ML (IN 100 ML BOTTLE)
     Route: 048
     Dates: start: 20230428

REACTIONS (1)
  - Cerebral disorder [Unknown]
